FAERS Safety Report 14402903 (Version 1)
Quarter: 2018Q1

REPORT INFORMATION
  Report Type: Spontaneous
  Country: US (occurrence: US)
  Receive Date: 20180117
  Receipt Date: 20180117
  Transmission Date: 20180509
  Serious: Yes (Other)
  Sender: FDA-Public Use
  Company Number: US-BAYER-2018-009059

PATIENT
  Age: 73 Year
  Sex: Female

DRUGS (1)
  1. BAYER ASPIRIN 500 MG [Suspect]
     Active Substance: ASPIRIN
     Indication: PAIN
     Dosage: 2 DF, ONCE
     Route: 048

REACTIONS (3)
  - Loss of consciousness [Recovered/Resolved]
  - Adverse drug reaction [Recovered/Resolved]
  - Chest pain [Recovered/Resolved]
